FAERS Safety Report 17671419 (Version 4)
Quarter: 2020Q2

REPORT INFORMATION
  Report Type: Report from Study
  Country: US (occurrence: US)
  Receive Date: 20200415
  Receipt Date: 20200611
  Transmission Date: 20200713
  Serious: Yes (Other)
  Sender: FDA-Public Use
  Company Number: US-PFIZER INC-2020006883

PATIENT
  Age: 63 Year
  Sex: Female

DRUGS (4)
  1. IBRANCE [Suspect]
     Active Substance: PALBOCICLIB
     Indication: BREAST CANCER FEMALE
     Dosage: 125 MG, CYCLIC (DAILY 21 DAYS OF A 28-DAY CYCLE)
     Route: 048
     Dates: start: 20191224, end: 20200115
  2. IBRANCE [Suspect]
     Active Substance: PALBOCICLIB
     Dosage: 125 MG, CYCLIC (DAILY FOR 21 DAYS ON; 7 DAYS OFF)
     Route: 048
     Dates: start: 2020
  3. ZOMETA [Concomitant]
     Active Substance: ZOLEDRONIC ACID
     Dosage: UNK
  4. LETROZOLE. [Concomitant]
     Active Substance: LETROZOLE
     Dosage: UNK

REACTIONS (20)
  - Diarrhoea [Not Recovered/Not Resolved]
  - Urticaria [Unknown]
  - Alopecia [Not Recovered/Not Resolved]
  - Blood potassium decreased [Unknown]
  - Red blood cell count decreased [Unknown]
  - Decreased appetite [Unknown]
  - Insomnia [Unknown]
  - Constipation [Not Recovered/Not Resolved]
  - Protein total decreased [Unknown]
  - Neoplasm progression [Unknown]
  - Taste disorder [Unknown]
  - Rash [Unknown]
  - Bronchitis [Unknown]
  - White blood cell count decreased [Unknown]
  - Dysuria [Unknown]
  - Renal impairment [Unknown]
  - Headache [Not Recovered/Not Resolved]
  - Fatigue [Not Recovered/Not Resolved]
  - Nausea [Not Recovered/Not Resolved]
  - Full blood count decreased [Unknown]

NARRATIVE: CASE EVENT DATE: 20200212
